FAERS Safety Report 26182067 (Version 1)
Quarter: 2025Q4

REPORT INFORMATION
  Report Type: Spontaneous
  Country: GB (occurrence: GB)
  Receive Date: 20251221
  Receipt Date: 20251221
  Transmission Date: 20260118
  Serious: Yes (Life-Threatening, Other)
  Sender: SK LIFE SCIENCE
  Company Number: GB-ACRAF-2025-039805

PATIENT

DRUGS (7)
  1. XCOPRI [Suspect]
     Active Substance: CENOBAMATE
     Indication: Partial seizures
     Dosage: 200MG ONCE DAILY
     Route: 065
  2. XCOPRI [Suspect]
     Active Substance: CENOBAMATE
     Dosage: 250MG ONCE DAILY
     Route: 065
  3. XCOPRI [Suspect]
     Active Substance: CENOBAMATE
     Dosage: 100MG ONCE DAILY
     Route: 065
  4. XCOPRI [Suspect]
     Active Substance: CENOBAMATE
     Dosage: 100MG TWICE DAILY
     Route: 065
     Dates: start: 20250701
  5. BRIVARACETAM [Suspect]
     Active Substance: BRIVARACETAM
     Indication: Product used for unknown indication
     Dosage: 150MG TWICE DAILY
     Route: 065
  6. BRIVARACETAM [Suspect]
     Active Substance: BRIVARACETAM
     Dosage: 50MG TWICE DAILY
     Route: 065
  7. LACOSAMIDE [Concomitant]
     Active Substance: LACOSAMIDE
     Indication: Product used for unknown indication
     Dosage: 50MG ONCE DAILYY
     Route: 065

REACTIONS (14)
  - Treatment noncompliance [Unknown]
  - Medication error [Unknown]
  - Drug ineffective [Unknown]
  - Fall [Unknown]
  - Back injury [Unknown]
  - Intrusive thoughts [Unknown]
  - Insomnia [Unknown]
  - Feeling abnormal [Unknown]
  - Injury [Unknown]
  - Drug interaction [Unknown]
  - Mood altered [Unknown]
  - Dizziness [Unknown]
  - Malaise [Unknown]
  - Suicide attempt [Unknown]
